FAERS Safety Report 19175741 (Version 1)
Quarter: 2021Q2

REPORT INFORMATION
  Report Type: Spontaneous
  Country: CN (occurrence: CN)
  Receive Date: 20210424
  Receipt Date: 20210424
  Transmission Date: 20210717
  Serious: Yes (Other)
  Sender: FDA-Public Use
  Company Number: CN-ROCHE-2813026

PATIENT
  Age: 31 Year
  Sex: Female

DRUGS (15)
  1. IRINOTECAN [Suspect]
     Active Substance: IRINOTECAN
     Route: 065
     Dates: start: 20200117
  2. IRINOTECAN [Suspect]
     Active Substance: IRINOTECAN
     Indication: COLON CANCER
     Dosage: ON DAY 1
     Route: 065
     Dates: start: 20190715, end: 20190911
  3. 5?FLUOROURACIL [Suspect]
     Active Substance: FLUOROURACIL
     Route: 042
     Dates: start: 20191202
  4. AVASTIN [Suspect]
     Active Substance: BEVACIZUMAB
     Indication: COLON CANCER
     Dosage: 4 CYCLES
     Route: 065
     Dates: start: 20190715, end: 20190911
  5. 5?FLUOROURACIL [Suspect]
     Active Substance: FLUOROURACIL
     Route: 042
     Dates: start: 20200117
  6. OXALIPLATIN. [Suspect]
     Active Substance: OXALIPLATIN
     Route: 065
     Dates: start: 20200117
  7. CALCIUM FOLINATE [Suspect]
     Active Substance: LEUCOVORIN CALCIUM
     Dosage: ON DAY 1
     Route: 065
     Dates: start: 20191202
  8. 5?FLUOROURACIL [Suspect]
     Active Substance: FLUOROURACIL
     Indication: COLON CANCER
     Route: 065
     Dates: start: 20190715, end: 20190911
  9. 5?FLUOROURACIL [Suspect]
     Active Substance: FLUOROURACIL
     Route: 065
     Dates: start: 20191202
  10. 5?FLUOROURACIL [Suspect]
     Active Substance: FLUOROURACIL
     Route: 065
     Dates: start: 20200117
  11. OXALIPLATIN. [Suspect]
     Active Substance: OXALIPLATIN
     Indication: COLON CANCER
     Dosage: ON DAY1
     Route: 065
     Dates: start: 20190715, end: 20190911
  12. CALCIUM FOLINATE [Suspect]
     Active Substance: LEUCOVORIN CALCIUM
     Indication: COLON CANCER
     Dosage: ON DAY 1
     Route: 065
     Dates: start: 20190715, end: 20190911
  13. OXALIPLATIN. [Suspect]
     Active Substance: OXALIPLATIN
     Dosage: ON DAY1
     Route: 065
     Dates: start: 20191202
  14. CALCIUM FOLINATE [Suspect]
     Active Substance: LEUCOVORIN CALCIUM
     Route: 065
     Dates: start: 20200117
  15. 5?FLUOROURACIL [Suspect]
     Active Substance: FLUOROURACIL
     Route: 042
     Dates: start: 20190715, end: 20190911

REACTIONS (4)
  - Asthenia [Unknown]
  - Diarrhoea [Unknown]
  - Myelosuppression [Unknown]
  - Neurotoxicity [Recovering/Resolving]
